FAERS Safety Report 14366141 (Version 8)
Quarter: 2019Q3

REPORT INFORMATION
  Report Type: Spontaneous
  Country: US (occurrence: US)
  Receive Date: 20180109
  Receipt Date: 20190910
  Transmission Date: 20191004
  Serious: Yes (Other)
  Sender: FDA-Public Use
  Company Number: US-AMGEN-USASP2018001653

PATIENT
  Age: 69 Year
  Sex: Female
  Weight: 69.84 kg

DRUGS (7)
  1. BENAZEPRIL [Concomitant]
     Active Substance: BENAZEPRIL HYDROCHLORIDE
     Dosage: UNK
  2. XELJANZ [Concomitant]
     Active Substance: TOFACITINIB CITRATE
     Indication: RHEUMATOID ARTHRITIS
     Dosage: 5 MILLIGRAM, BID
     Route: 048
     Dates: start: 20160317
  3. ATENOLOL. [Concomitant]
     Active Substance: ATENOLOL
     Dosage: UNK
  4. BACTRIM [Concomitant]
     Active Substance: SULFAMETHOXAZOLE\TRIMETHOPRIM
     Dosage: UNK
  5. CODEINE [Concomitant]
     Active Substance: CODEINE
     Dosage: UNK
  6. GOLD [Concomitant]
     Active Substance: GOLD
     Dosage: UNK
  7. ENBREL [Suspect]
     Active Substance: ETANERCEPT
     Indication: RHEUMATOID ARTHRITIS
     Dosage: 50 MILLIGRAM, QWK
     Route: 058
     Dates: start: 2011, end: 20151102

REACTIONS (16)
  - Tremor [Recovering/Resolving]
  - Cerebral ischaemia [Recovering/Resolving]
  - Drug hypersensitivity [Unknown]
  - Vertigo [Recovered/Resolved]
  - White matter lesion [Recovering/Resolving]
  - Dizziness [Recovering/Resolving]
  - Rheumatoid arthritis [Recovering/Resolving]
  - Migraine [Recovering/Resolving]
  - Cerebral atrophy [Recovering/Resolving]
  - Hypertension [Recovering/Resolving]
  - Gastrointestinal disorder [Recovering/Resolving]
  - Headache [Recovered/Resolved]
  - Hiatus hernia [Unknown]
  - Cardiac disorder [Recovering/Resolving]
  - Fatigue [Recovering/Resolving]
  - Amnesia [Recovering/Resolving]

NARRATIVE: CASE EVENT DATE: 20150811
